FAERS Safety Report 4384910-X (Version None)
Quarter: 2004Q2

REPORT INFORMATION
  Report Type: 
  Country: None (occurrence: None)
  Receive Date: 20040622
  Receipt Date: 20040609
  Transmission Date: 20050107
  Serious: Yes (Hospitalization)
  Sender: FDA-Public Use
  Company Number: JP-JNJFOC- 20040603404

PATIENT
  Age: 70 Year
  Sex: Male

DRUGS (6)
  1. ITRACONAZOLE [Suspect]
     Indication: ONYCHOMYCOSIS
     Dosage: 50 MG, 1 IN 1 DAY, ORAL
     Route: 048
     Dates: start: 20040401, end: 20040601
  2. AMLODIPINE BESYLATE [Concomitant]
  3. LISINOPRIL [Concomitant]
  4. PIOGLITAZONE HCL [Concomitant]
  5. GLIMEPIRIDE [Concomitant]
  6. GOSHA-JINKI-GAN (GOSHAJINKIGAN) [Concomitant]

REACTIONS (7)
  - HEPATIC FUNCTION ABNORMAL [None]
  - INFECTION [None]
  - LABORATORY TEST ABNORMAL [None]
  - LIVER DISORDER [None]
  - PULMONARY OEDEMA [None]
  - RENAL CYST [None]
  - RENAL IMPAIRMENT [None]
